FAERS Safety Report 8294376-5 (Version None)
Quarter: 2012Q2

REPORT INFORMATION
  Report Type: 
  Country: None (occurrence: None)
  Receive Date: 20120413
  Receipt Date: 20120302
  Transmission Date: 20120825
  Serious: Yes (Other)
  Sender: FDA-Public Use
  Company Number: ABR_00422_2012

PATIENT
  Age: 46 Year
  Sex: Female

DRUGS (1)
  1. ERYTHROMYCIN [Suspect]
     Indication: PRODUCT USED FOR UNKNOWN INDICATION
     Dosage: (UNK UNKNOWN)

REACTIONS (3)
  - SKIN EXFOLIATION [None]
  - URTICARIA [None]
  - BODY TEMPERATURE INCREASED [None]
